FAERS Safety Report 5060797-7 (Version None)
Quarter: 2006Q3

REPORT INFORMATION
  Report Type: 
  Country: None (occurrence: None)
  Receive Date: 20060719
  Receipt Date: 20060719
  Transmission Date: 20061208
  Serious: Yes (Hospitalization)
  Sender: FDA-Public Use
  Company Number: None

PATIENT
  Age: 59 Year
  Sex: Male
  Weight: 108.4097 kg

DRUGS (1)
  1. TERAZOSIN HCL [Suspect]
     Indication: PROSTATIC DISORDER
     Dosage: 5 MG QHS PO
     Route: 048
     Dates: start: 20060314, end: 20060602

REACTIONS (6)
  - ASTHENIA [None]
  - DYSPNOEA EXERTIONAL [None]
  - NAUSEA [None]
  - ORAL INTAKE REDUCED [None]
  - ORTHOSTATIC HYPOTENSION [None]
  - VIRAL INFECTION [None]
